FAERS Safety Report 6152563-6 (Version None)
Quarter: 2009Q2

REPORT INFORMATION
  Report Type: 
  Country: None (occurrence: None)
  Receive Date: 20090413
  Receipt Date: 20090407
  Transmission Date: 20091009
  Serious: Yes (Disabling, Other)
  Sender: FDA-Public Use
  Company Number: US-BRISTOL-MYERS SQUIBB COMPANY-14539829

PATIENT
  Age: 47 Year
  Sex: Female
  Weight: 73 kg

DRUGS (22)
  1. PACLITAXEL [Suspect]
     Indication: BREAST CANCER METASTATIC
     Dosage: FIRST DOSE: 22FEB2008. DAYS 1,8,15, LAST DOSE ON 05DEC2008.
     Route: 042
     Dates: start: 20081205, end: 20081205
  2. BEVACIZUMAB [Suspect]
     Indication: BREAST CANCER METASTATIC
     Dosage: FIRST DOSE: 22FEB2008. DAYS 1,15. LAST DOSE ON 05-DEC-2008
     Route: 042
     Dates: start: 20081205, end: 20081205
  3. CYMBALTA [Concomitant]
  4. MULTI-VITAMIN [Concomitant]
     Dates: start: 20001205
  5. WELLBUTRIN XL [Concomitant]
     Dates: start: 20050720
  6. HALOPERIDOL DECANOATE [Concomitant]
  7. CALCIUM [Concomitant]
     Dates: start: 20050720
  8. SEROQUEL [Concomitant]
  9. NEURONTIN [Concomitant]
     Dates: start: 20070521
  10. HALOPERIDOL [Concomitant]
  11. SYNTHROID [Concomitant]
     Dates: start: 19950329
  12. NEUPOGEN [Concomitant]
     Dates: start: 20080421
  13. GRANISETRON HCL [Concomitant]
     Dates: start: 20080307
  14. AMITIZA [Concomitant]
  15. BENZONATATE [Concomitant]
     Dates: start: 20080512
  16. DOCUSATE SODIUM [Concomitant]
  17. LAMICTAL [Concomitant]
     Dates: start: 20061116
  18. CYPROHEPTADINE HCL [Concomitant]
     Dates: start: 20080605
  19. CLOTRIMAZOLE [Concomitant]
     Dates: start: 20080627
  20. HYDROCORTISONE ACETATE [Concomitant]
     Dates: start: 20080410
  21. METOCLOPRAMIDE [Concomitant]
     Dates: start: 20080512
  22. SULFAMETHOXAZOLE AND TRIMETHOPRIM [Concomitant]
     Dates: start: 20080725, end: 20081223

REACTIONS (1)
  - MACULAR OEDEMA [None]
